FAERS Safety Report 5527931-3 (Version None)
Quarter: 2007Q4

REPORT INFORMATION
  Report Type: 
  Country: None (occurrence: None)
  Receive Date: 20071126
  Receipt Date: 20071126
  Transmission Date: 20080405
  Serious: No
  Sender: FDA-Public Use
  Company Number: None

PATIENT
  Sex: Male
  Weight: 87.0906 kg

DRUGS (1)
  1. CHANTIX [Suspect]
     Indication: SMOKING CESSATION THERAPY
     Dosage: 1 TABLET 2 TIMES PER DAY PO
     Route: 048
     Dates: start: 20071109, end: 20071123

REACTIONS (5)
  - ABNORMAL DREAMS [None]
  - AGGRESSION [None]
  - DEPRESSION [None]
  - DISTURBANCE IN ATTENTION [None]
  - SOMNOLENCE [None]
